FAERS Safety Report 15125901 (Version 3)
Quarter: 2018Q3

REPORT INFORMATION
  Report Type: Report from Study
  Country: US (occurrence: US)
  Receive Date: 20180710
  Receipt Date: 20180831
  Transmission Date: 20181010
  Serious: Yes (Hospitalization)
  Sender: FDA-Public Use
  Company Number: US-GILEAD-2018-0343585

PATIENT
  Age: 74 Year
  Sex: Male

DRUGS (15)
  1. MEMANTINE. [Concomitant]
     Active Substance: MEMANTINE
  2. FUROSEMIDE. [Concomitant]
     Active Substance: FUROSEMIDE
  3. ROPINIROLE. [Concomitant]
     Active Substance: ROPINIROLE
  4. BUPRENORPHINE. [Concomitant]
     Active Substance: BUPRENORPHINE
  5. CIPROFLOXACIN. [Concomitant]
     Active Substance: CIPROFLOXACIN
  6. ATORVASTATIN [Concomitant]
     Active Substance: ATORVASTATIN
  7. GABAPENTIN. [Concomitant]
     Active Substance: GABAPENTIN
  8. BELBUCA [Concomitant]
     Active Substance: BUPRENORPHINE HYDROCHLORIDE
  9. POTASSIUM CHLORIDE. [Concomitant]
     Active Substance: POTASSIUM CHLORIDE
  10. SPIRONOLACTONE. [Concomitant]
     Active Substance: SPIRONOLACTONE
  11. AMBRISENTAN [Suspect]
     Active Substance: AMBRISENTAN
     Indication: PULMONARY ARTERIAL HYPERTENSION
     Dosage: 10 MG, QD
     Route: 065
     Dates: start: 20171219
  12. GLIMEPIRIDE. [Concomitant]
     Active Substance: GLIMEPIRIDE
  13. HYDROCODONE BITARTRATE AND ACETAMINOPHEN [Concomitant]
     Active Substance: ACETAMINOPHEN\HYDROCODONE BITARTRATE
  14. PANTOPRAZOLE [Concomitant]
     Active Substance: PANTOPRAZOLE
  15. IPRATROPIUM BROMIDE AND ALBUTEROL SULFATE [Concomitant]
     Active Substance: ALBUTEROL SULFATE\IPRATROPIUM BROMIDE

REACTIONS (5)
  - Drug dose omission [Unknown]
  - Fall [Unknown]
  - Intentional dose omission [Recovered/Resolved]
  - Intentional dose omission [Recovered/Resolved]
  - Fall [Recovered/Resolved]

NARRATIVE: CASE EVENT DATE: 20180501
